FAERS Safety Report 4848830-6 (Version None)
Quarter: 2005Q4

REPORT INFORMATION
  Report Type: 
  Country: None (occurrence: None)
  Receive Date: 20051115
  Receipt Date: 20050929
  Transmission Date: 20060501
  Serious: No
  Sender: FDA-Public Use
  Company Number: 401300

PATIENT
  Age: 52 Year
  Sex: Male
  Weight: 59.4 kg

DRUGS (3)
  1. PEGASYS [Suspect]
     Indication: HEPATITIS C VIRUS
     Dosage: 180 MCG  1 PER WEEK  SUBCUTANEOUS
     Route: 058
     Dates: start: 20041021, end: 20050525
  2. COPEGUS [Suspect]
     Indication: HEPATITIS C VIRUS
     Dosage: 1000 MG DAILY  ORAL
     Route: 048
     Dates: start: 20041021, end: 20050525
  3. PROPRANOLOL [Concomitant]

REACTIONS (12)
  - ANAEMIA [None]
  - DIZZINESS [None]
  - DRY SKIN [None]
  - FATIGUE [None]
  - INFLUENZA LIKE ILLNESS [None]
  - INSOMNIA [None]
  - MENTAL STATUS CHANGES [None]
  - NAUSEA [None]
  - PANCYTOPENIA [None]
  - PLATELET COUNT DECREASED [None]
  - RASH [None]
  - WHITE BLOOD CELL COUNT DECREASED [None]
